FAERS Safety Report 16227298 (Version 1)
Quarter: 2019Q2

REPORT INFORMATION
  Report Type: Spontaneous
  Country: NL (occurrence: PL)
  Receive Date: 20190423
  Receipt Date: 20190423
  Transmission Date: 20190711
  Serious: Yes (Hospitalization)
  Sender: FDA-Public Use
  Company Number: PL-FRESENIUS KABI-FK201904628

PATIENT
  Age: 1 Month
  Sex: Male
  Weight: 4.52 kg

DRUGS (2)
  1. CLINDAMYCIN KABI 150 MG / ML [Suspect]
     Active Substance: CLINDAMYCIN PHOSPHATE
     Indication: ARTHRITIS
     Dosage: DOSAGE: 3 X 30 MG
     Route: 042
     Dates: start: 20161126, end: 20161203
  2. GLUCOSE [Concomitant]
     Active Substance: DEXTROSE
     Indication: PRODUCT USED FOR UNKNOWN INDICATION
     Route: 065
     Dates: start: 20161126, end: 20161203

REACTIONS (2)
  - Rash macular [Recovered/Resolved]
  - Product use in unapproved indication [Unknown]

NARRATIVE: CASE EVENT DATE: 20161203
